FAERS Safety Report 11354366 (Version 1)
Quarter: 2015Q3

REPORT INFORMATION
  Report Type: Spontaneous
  Country: CH (occurrence: CH)
  Receive Date: 20150807
  Receipt Date: 20150807
  Transmission Date: 20151125
  Serious: Yes (Hospitalization)
  Sender: FDA-Public Use
  Company Number: CH-RECKITT BENCKISER PHARMACEUTICAL, INC-RB-081749-2015

PATIENT
  Age: 94 Year
  Sex: Female
  Weight: 61.1 kg

DRUGS (39)
  1. BUPRENORPHINE HYDROCHLORIDE. [Suspect]
     Active Substance: BUPRENORPHINE HYDROCHLORIDE
     Dosage: 0.1 MG, 6AM, 9AM AND 2PM
     Route: 060
     Dates: start: 20150525, end: 20150525
  2. BUPRENORPHINE HYDROCHLORIDE. [Suspect]
     Active Substance: BUPRENORPHINE HYDROCHLORIDE
     Dosage: 0.1 MG, AT 8 AM
     Route: 060
     Dates: start: 20150606, end: 20150606
  3. LEXOTANIL [Suspect]
     Active Substance: BROMAZEPAM
     Indication: INSOMNIA
     Dosage: UNK
     Route: 065
  4. LEXOTANIL [Suspect]
     Active Substance: BROMAZEPAM
     Dosage: 1.5 MG, AT 11 PM
     Route: 048
     Dates: start: 20150524, end: 20150524
  5. DILZEM [Suspect]
     Active Substance: DILTIAZEM
     Indication: ATRIAL FIBRILLATION
     Dosage: 30 MG, TID
     Route: 048
     Dates: start: 20150523, end: 20150609
  6. ATORVASTATIN [Concomitant]
     Active Substance: ATORVASTATIN
     Indication: CARDIOVASCULAR EVENT PROPHYLAXIS
     Dosage: 40 MG, QD
     Route: 048
     Dates: start: 20150605, end: 20150612
  7. SINTROM [Concomitant]
     Active Substance: ACENOCOUMAROL
     Indication: ATRIAL FIBRILLATION
     Dosage: 0.5 MG, QD
     Route: 048
     Dates: start: 20150616
  8. BUPRENORPHINE HYDROCHLORIDE. [Suspect]
     Active Substance: BUPRENORPHINE HYDROCHLORIDE
     Dosage: 0.1 MG, AT 6AM AND 2PM
     Route: 060
     Dates: start: 20150526, end: 20150526
  9. VI-DE 3 [Concomitant]
     Active Substance: CHOLECALCIFEROL
     Indication: OSTEOPOROSIS PROPHYLAXIS
     Dosage: 800 IU, QD
     Route: 048
  10. BUPRENORPHINE HYDROCHLORIDE. [Suspect]
     Active Substance: BUPRENORPHINE HYDROCHLORIDE
     Dosage: 0.1 MG, AT 2:00 PM
     Route: 060
     Dates: start: 20150523, end: 20150523
  11. BUPRENORPHINE HYDROCHLORIDE. [Suspect]
     Active Substance: BUPRENORPHINE HYDROCHLORIDE
     Dosage: 0.1 MG, AT 9 AM
     Route: 060
     Dates: start: 20150605, end: 20150605
  12. LEXOTANIL [Suspect]
     Active Substance: BROMAZEPAM
     Dosage: 1.5 MG, AT 11 PM
     Route: 048
     Dates: start: 20150525, end: 20150525
  13. LEXOTANIL [Suspect]
     Active Substance: BROMAZEPAM
     Dosage: 1.5 MG, 1 PM
     Route: 048
     Dates: start: 20150531, end: 20150531
  14. LASIX [Concomitant]
     Active Substance: FUROSEMIDE
     Indication: CARDIAC FAILURE ACUTE
     Dosage: 20 MG, QD
     Route: 040
     Dates: start: 20150602, end: 20150604
  15. CALCIPARINE [Concomitant]
     Active Substance: HEPARIN CALCIUM
     Indication: THROMBOSIS PROPHYLAXIS
     Dosage: 500 IU, BID
     Route: 058
     Dates: start: 20150522, end: 20150620
  16. LAXOBERON [Concomitant]
     Active Substance: SODIUM PICOSULFATE
     Indication: CONSTIPATION
     Dosage: 5 MG, QD
     Route: 048
  17. KONAKION MM [Concomitant]
     Indication: PROCOAGULANT THERAPY
     Dosage: 150 ?G, QD
     Route: 048
     Dates: start: 20150625
  18. BUPRENORPHINE HYDROCHLORIDE. [Suspect]
     Active Substance: BUPRENORPHINE HYDROCHLORIDE
     Dosage: 0.1 MG, AT 6 AM, 2 PM AND 9 PM
     Route: 060
     Dates: start: 20150524, end: 20150524
  19. BUPRENORPHINE HYDROCHLORIDE. [Suspect]
     Active Substance: BUPRENORPHINE HYDROCHLORIDE
     Dosage: 0.1 MG, AT 6AM, 9AM AND 9PM
     Route: 060
     Dates: start: 20150527, end: 20150527
  20. LEXOTANIL [Suspect]
     Active Substance: BROMAZEPAM
     Dosage: 1.5 MG, 1 AM
     Route: 048
     Dates: start: 20150601, end: 20150601
  21. CLARITHROMYCINE [Suspect]
     Active Substance: CLARITHROMYCIN
     Indication: LUNG DISORDER
     Dosage: 500 MG, Q12H
     Route: 040
     Dates: start: 20150521, end: 20150521
  22. BUPRENORPHINE HYDROCHLORIDE. [Suspect]
     Active Substance: BUPRENORPHINE HYDROCHLORIDE
     Dosage: 0.1 MG, 6AM, 11AM, 2PM AND 9PM
     Route: 060
     Dates: start: 20150529, end: 20150529
  23. LEXOTANIL [Suspect]
     Active Substance: BROMAZEPAM
     Dosage: 1.5 MG, AT 9 PM
     Route: 048
     Dates: start: 20150528, end: 20150528
  24. DISTRANEURIN                       /00027501/ [Suspect]
     Active Substance: CLOMETHIAZOLE
     Indication: INSOMNIA
     Dosage: 150 MG, AS NECESSARY
     Route: 048
     Dates: start: 20150608, end: 20150608
  25. DISTRANEURIN                       /00027501/ [Suspect]
     Active Substance: CLOMETHIAZOLE
     Dosage: 150 MG, AS NECESSARY
     Route: 048
     Dates: start: 20150611, end: 20150611
  26. TEMESTA                            /00273201/ [Suspect]
     Active Substance: LORAZEPAM
     Indication: INSOMNIA
     Dosage: 0.5 MG, QD
     Route: 060
     Dates: start: 20150521, end: 20150629
  27. NEOMERCAZOLE [Concomitant]
     Active Substance: CARBIMAZOLE
     Indication: HYPERTHYROIDISM
     Dosage: 5 MG, TID
     Route: 048
     Dates: start: 20150529
  28. DAFALGAN [Concomitant]
     Active Substance: ACETAMINOPHEN
     Indication: PAIN
     Dosage: 1 G, TID
     Route: 048
  29. PEVARYL                            /00418501/ [Concomitant]
     Active Substance: ECONAZOLE NITRATE
     Indication: FUNGAL SKIN INFECTION
     Dosage: 1 DF, BID
     Route: 061
     Dates: start: 20150604, end: 20150615
  30. BUPRENORPHINE HYDROCHLORIDE. [Suspect]
     Active Substance: BUPRENORPHINE HYDROCHLORIDE
     Indication: ARTHRALGIA
     Dosage: 0.1 MG AT 4:00 AM
     Route: 060
     Dates: start: 20150522, end: 20150522
  31. BUPRENORPHINE HYDROCHLORIDE. [Suspect]
     Active Substance: BUPRENORPHINE HYDROCHLORIDE
     Dosage: 0.1 MG, 6AM, 9AM, 2PM, 5PM AND 9PM
     Route: 060
     Dates: start: 20150601, end: 20150601
  32. BUPRENORPHINE HYDROCHLORIDE. [Suspect]
     Active Substance: BUPRENORPHINE HYDROCHLORIDE
     Dosage: 0.1 MG, 6AM, 9AM, 2PM AND 9 PM
     Route: 060
     Dates: start: 20150528, end: 20150528
  33. AUGMENTIN [Concomitant]
     Active Substance: AMOXICILLIN\CLAVULANATE POTASSIUM
     Indication: LUNG DISORDER
     Dosage: 0.6 MG, BID
     Route: 040
     Dates: start: 20150606, end: 20150611
  34. BUPRENORPHINE HYDROCHLORIDE. [Suspect]
     Active Substance: BUPRENORPHINE HYDROCHLORIDE
     Dosage: 0.1 MG, 6AM, 2PM AND 9PM
     Route: 060
     Dates: start: 20150530, end: 20150531
  35. BUPRENORPHINE HYDROCHLORIDE. [Suspect]
     Active Substance: BUPRENORPHINE HYDROCHLORIDE
     Dosage: 0.1 MG, AT 9 AM
     Route: 060
     Dates: start: 20150602, end: 20150602
  36. TORASEMIDE [Concomitant]
     Active Substance: TORSEMIDE
     Indication: CARDIAC FAILURE ACUTE
     Dosage: 5 MG, QD
     Route: 048
     Dates: start: 20150605, end: 20150609
  37. ASPIRIN CARDIO [Concomitant]
     Active Substance: ASPIRIN
     Indication: CORONARY ARTERY DISEASE
     Dosage: 100 MG, QD
     Route: 048
     Dates: start: 20150401, end: 20150617
  38. NEXIUM [Concomitant]
     Active Substance: ESOMEPRAZOLE MAGNESIUM
     Indication: REFLUX GASTRITIS
     Dosage: 20 MG, QD
     Route: 048
     Dates: start: 20150521
  39. BELOC                              /00376903/ [Concomitant]
     Active Substance: METOPROLOL TARTRATE
     Indication: ARRHYTHMIA
     Dosage: 25 MG, QD
     Route: 048

REACTIONS (1)
  - Delirium [Recovered/Resolved]

NARRATIVE: CASE EVENT DATE: 20150606
